FAERS Safety Report 6155656-2 (Version None)
Quarter: 2009Q2

REPORT INFORMATION
  Report Type: 
  Country: None (occurrence: None)
  Receive Date: 20090415
  Receipt Date: 20090407
  Transmission Date: 20091009
  Serious: Yes (Death)
  Sender: FDA-Public Use
  Company Number: NO-ELI_LILLY_AND_COMPANY-NO200903000845

PATIENT
  Age: 32 Year
  Sex: Female
  Weight: 24 kg

DRUGS (5)
  1. ZYPREXA [Suspect]
     Indication: ANOREXIA NERVOSA
     Dosage: 2.5 MG, UNK
     Route: 048
     Dates: start: 20081101
  2. ZYPREXA [Suspect]
     Dosage: 10 MG, UNK
     Route: 048
  3. FLUNIPAM [Concomitant]
     Dosage: 6 D/F, DAILY (1/D)
  4. KALEORID [Concomitant]
     Dosage: 6 D/F, DAILY (1/D)
  5. NOZINAN [Concomitant]
     Dosage: 2 G, DAILY (1/D)

REACTIONS (3)
  - ANOREXIA [None]
  - MALNUTRITION [None]
  - PNEUMONIA [None]
